FAERS Safety Report 18216634 (Version 1)
Quarter: 2020Q3

REPORT INFORMATION
  Report Type: Spontaneous
  Country: US (occurrence: US)
  Receive Date: 20200831
  Receipt Date: 20200831
  Transmission Date: 20201103
  Serious: Yes (Hospitalization)
  Sender: FDA-Public Use
  Company Number: None

PATIENT
  Age: 54 Year
  Sex: Male
  Weight: 75.3 kg

DRUGS (2)
  1. BUSPIRONE (BUSPIRONE HCL 10MG TAB) [Suspect]
     Active Substance: BUSPIRONE HYDROCHLORIDE
     Indication: MENTAL DISORDER
     Route: 048
     Dates: start: 20191210, end: 20200629
  2. FLUOXETINE (FLUOXETINE HCL 20MG CAP) [Suspect]
     Active Substance: FLUOXETINE HYDROCHLORIDE
     Indication: MENTAL DISORDER
     Route: 048
     Dates: start: 20191210, end: 20200629

REACTIONS (3)
  - Alcohol withdrawal syndrome [None]
  - Serotonin syndrome [None]
  - Drug withdrawal syndrome [None]

NARRATIVE: CASE EVENT DATE: 20200629
